FAERS Safety Report 6793408-0 (Version None)
Quarter: 2010Q2

REPORT INFORMATION
  Report Type: 
  Country: None (occurrence: None)
  Receive Date: 20100624
  Receipt Date: 20100322
  Transmission Date: 20101027
  Serious: Yes (Death)
  Sender: FDA-Public Use
  Company Number: US-MYLANLABS-2010S1002504

PATIENT
  Age: 81 Year
  Sex: Male

DRUGS (6)
  1. CLOZAPINE [Suspect]
     Indication: ABNORMAL BEHAVIOUR
     Dates: start: 20090717
  2. LORAZEPAM [Concomitant]
  3. MORPHINE SULFATE [Concomitant]
  4. SEROQUEL [Concomitant]
  5. TYLENOL [Concomitant]
  6. ATROPINE [Concomitant]
     Dosage: DROPS

REACTIONS (2)
  - DEMENTIA ALZHEIMER'S TYPE [None]
  - DISEASE PROGRESSION [None]
